FAERS Safety Report 9260239 (Version 1)
Quarter: 2013Q2

REPORT INFORMATION
  Report Type: Spontaneous
  Country: US (occurrence: US)
  Receive Date: 20130429
  Receipt Date: 20130429
  Transmission Date: 20140414
  Serious: No
  Sender: FDA-Public Use
  Company Number: US-PFIZER INC-2013128746

PATIENT
  Sex: Female

DRUGS (3)
  1. METHYLPREDNISOLONE SODIUM SUCCINATE [Suspect]
     Indication: ALLERGY PROPHYLAXIS
     Dosage: 320 MG, UNK
     Route: 042
     Dates: start: 20130306, end: 20130313
  2. BENADRYL [Suspect]
     Indication: ALLERGY PROPHYLAXIS
     Dosage: UNK
     Dates: start: 20130306
  3. PEPCID [Suspect]
     Indication: ALLERGY PROPHYLAXIS
     Dosage: UNK
     Dates: start: 20130306

REACTIONS (1)
  - Dyspnoea [Unknown]
